FAERS Safety Report 4894528-8 (Version None)
Quarter: 2006Q1

REPORT INFORMATION
  Report Type: 
  Country: None (occurrence: None)
  Receive Date: 20060127
  Receipt Date: 20040405
  Transmission Date: 20060701
  Serious: Yes (Hospitalization)
  Sender: FDA-Public Use
  Company Number: JP-ABBOTT-04P-087-0256490-00

PATIENT
  Sex: Male

DRUGS (35)
  1. KALETRA [Suspect]
     Indication: HIV INFECTION
     Route: 048
     Dates: start: 20020513, end: 20020715
  2. KALETRA [Suspect]
     Route: 048
     Dates: start: 20030409, end: 20030409
  3. NORVIR [Suspect]
     Indication: HIV INFECTION
     Route: 048
     Dates: start: 20010212, end: 20010322
  4. NORVIR [Suspect]
     Route: 048
     Dates: start: 20010208, end: 20010311
  5. ZIDOVUDINE [Suspect]
     Indication: HIV INFECTION
     Route: 048
     Dates: start: 20010208, end: 20010405
  6. ABACAVIR [Suspect]
     Indication: HIV INFECTION
     Route: 048
     Dates: start: 20010406, end: 20030408
  7. NELFINAVIR MESILATE [Suspect]
     Indication: HIV INFECTION
     Route: 048
     Dates: start: 20030425, end: 20040521
  8. NELFINAVIR MESILATE [Suspect]
     Route: 048
     Dates: start: 20041004
  9. SAQUINAVIR [Suspect]
     Indication: HIV INFECTION
     Route: 048
     Dates: start: 20010208, end: 20010322
  10. VIREAD [Suspect]
     Indication: HIV INFECTION
     Route: 048
     Dates: start: 20030409
  11. BACTRIM [Concomitant]
     Indication: ANTIBIOTIC PROPHYLAXIS
     Dates: start: 20010202, end: 20010406
  12. BACTRIM [Concomitant]
     Dates: start: 20001206, end: 20001211
  13. BACTRIM [Concomitant]
     Dates: start: 20001212, end: 20010125
  14. BACTRIM [Concomitant]
     Dates: start: 20030403, end: 20030708
  15. BACTRIM [Concomitant]
     Route: 048
     Dates: start: 20040708, end: 20041018
  16. EFAVIRENZ [Concomitant]
     Indication: HIV INFECTION
     Route: 048
     Dates: start: 20010323, end: 20020512
  17. EFAVIRENZ [Concomitant]
     Route: 048
     Dates: start: 20030409, end: 20030409
  18. EFAVIRENZ [Concomitant]
     Route: 048
     Dates: start: 20030425, end: 20040521
  19. EFAVIRENZ [Concomitant]
     Route: 048
     Dates: start: 20041004
  20. LAMIVUDINE [Concomitant]
     Indication: HIV INFECTION
     Route: 048
     Dates: start: 20010208, end: 20030409
  21. ABACAVIR SULFATE [Concomitant]
     Indication: HIV INFECTION
     Route: 048
     Dates: start: 20020514, end: 20030409
  22. DIDANOSINE [Concomitant]
     Indication: HIV INFECTION
     Route: 048
     Dates: start: 20020716, end: 20030404
  23. TENOFOVIR [Concomitant]
     Indication: HIV INFECTION
     Route: 048
     Dates: start: 20030409, end: 20030409
  24. TENOFOVIR [Concomitant]
     Route: 048
     Dates: start: 20030425, end: 20040521
  25. TENOFOVIR [Concomitant]
     Route: 048
     Dates: start: 20041004
  26. CONCENTRATED GLYCERIN FRUCTOSE [Concomitant]
     Indication: SUBARACHNOID HAEMORRHAGE
     Route: 042
     Dates: start: 20001123, end: 20001227
  27. GABEXATE MESILATE [Concomitant]
     Indication: PANCREATITIS CHRONIC
     Route: 042
     Dates: start: 20010125, end: 20010128
  28. NAFAMOSTAT MESILATE [Concomitant]
     Indication: PANCREATITIS CHRONIC
     Route: 042
     Dates: start: 20010208, end: 20010219
  29. NAFAMOSTAT MESILATE [Concomitant]
     Route: 042
     Dates: start: 20010220, end: 20010225
  30. DIGESTIVE ENZYME PREPARATIONS [Concomitant]
     Indication: PANCREATITIS CHRONIC
     Route: 048
     Dates: start: 20010226, end: 20010313
  31. DIGESTIVE ENZYME PREPARATIONS [Concomitant]
     Route: 048
     Dates: start: 20010314, end: 20040808
  32. DIGESTIVE ENZYME PREPARATIONS [Concomitant]
     Route: 048
     Dates: start: 20040906
  33. BERIZYM [Concomitant]
     Indication: DRUG USE FOR UNKNOWN INDICATION
  34. ACETYLSALICYLIC ACID [Concomitant]
     Indication: RETINAL VEIN OCCLUSION
     Dates: start: 20030808, end: 20040808
  35. ACETYLSALICYLIC ACID [Concomitant]
     Dates: start: 20040906

REACTIONS (8)
  - ARRHYTHMIA [None]
  - BRADYCARDIA [None]
  - DIARRHOEA [None]
  - EXTRASYSTOLES [None]
  - NAUSEA [None]
  - RETINAL VEIN OCCLUSION [None]
  - VENTRICULAR EXTRASYSTOLES [None]
  - VOMITING [None]
